FAERS Safety Report 6827617-9 (Version None)
Quarter: 2010Q3

REPORT INFORMATION
  Report Type: 
  Country: None (occurrence: None)
  Receive Date: 20100709
  Receipt Date: 20070120
  Transmission Date: 20110219
  Serious: No
  Sender: FDA-Public Use
  Company Number: US-PFIZER INC-2007006371

PATIENT
  Age: 37 Year
  Sex: Male
  Weight: 104.33 kg

DRUGS (5)
  1. CHANTIX [Suspect]
     Indication: SMOKING CESSATION THERAPY
     Dates: start: 20070120
  2. PROTONIX [Concomitant]
     Indication: GASTROOESOPHAGEAL REFLUX DISEASE
  3. LAMICTAL [Concomitant]
  4. SEROQUEL [Concomitant]
  5. LUNESTA [Concomitant]
     Indication: SLEEP DISORDER

REACTIONS (1)
  - NAUSEA [None]
